FAERS Safety Report 12133778 (Version 2)
Quarter: 2016Q2

REPORT INFORMATION
  Report Type: Spontaneous
  Country: US (occurrence: US)
  Receive Date: 20160301
  Receipt Date: 20160518
  Transmission Date: 20160815
  Serious: Yes (Other)
  Sender: FDA-Public Use
  Company Number: US-TEVA-639260ACC

PATIENT
  Sex: Female

DRUGS (1)
  1. PARAGARD T 380A [Suspect]
     Active Substance: COPPER
     Indication: CONTRACEPTION
     Route: 065

REACTIONS (4)
  - Device breakage [Recovered/Resolved]
  - Complication associated with device [Recovered/Resolved]
  - Back pain [Unknown]
  - Embedded device [Recovered/Resolved]

NARRATIVE: CASE EVENT DATE: 20160209
